FAERS Safety Report 7907176-X (Version None)
Quarter: 2011Q4

REPORT INFORMATION
  Report Type: 
  Country: None (occurrence: None)
  Receive Date: 20111110
  Receipt Date: 20111031
  Transmission Date: 20120403
  Serious: Yes (Hospitalization)
  Sender: FDA-Public Use
  Company Number: US-BAYER-201036654NA

PATIENT
  Age: 21 Year
  Sex: Female

DRUGS (3)
  1. YASMIN [Suspect]
     Indication: ORAL CONTRACEPTION
     Dosage: UNK UNK, UNK
     Route: 048
     Dates: start: 20010101, end: 20020101
  2. YASMIN [Suspect]
     Dosage: UNK
     Route: 048
     Dates: start: 20030301, end: 20030801
  3. YAZ [Suspect]
     Dosage: UNK
     Route: 048

REACTIONS (11)
  - CHOLELITHIASIS [None]
  - PAIN [None]
  - ABDOMINAL DISTENSION [None]
  - ANXIETY [None]
  - SCAR [None]
  - DYSPEPSIA [None]
  - DIARRHOEA [None]
  - CONSTIPATION [None]
  - EMOTIONAL DISTRESS [None]
  - FLATULENCE [None]
  - DEPRESSION [None]
